FAERS Safety Report 4597653-4 (Version None)
Quarter: 2005Q1

REPORT INFORMATION
  Report Type: 
  Country: None (occurrence: None)
  Receive Date: 20050303
  Receipt Date: 20050131
  Transmission Date: 20050727
  Serious: Yes (Hospitalization)
  Sender: FDA-Public Use
  Company Number: FR-GLAXOSMITHKLINE-B0369850A

PATIENT
  Age: 65 Year
  Sex: Male

DRUGS (4)
  1. MALARONE [Suspect]
     Indication: MALARIA PROPHYLAXIS
     Dosage: 1TAB PER DAY
     Route: 048
  2. PYOSTACINE [Suspect]
     Indication: SKIN NECROSIS
     Route: 048
  3. BETA BLOCKER [Concomitant]
     Indication: HYPERTENSION
  4. IMOVANE [Concomitant]
     Indication: INSOMNIA
     Route: 048

REACTIONS (7)
  - HAEMATURIA [None]
  - INFECTION [None]
  - LEUKOCYTOCLASTIC VASCULITIS [None]
  - RASH MACULO-PAPULAR [None]
  - RASH PUSTULAR [None]
  - TOXIC SKIN ERUPTION [None]
  - WOUND NECROSIS [None]
